FAERS Safety Report 9811504 (Version 2)
Quarter: 2015Q4

REPORT INFORMATION
  Report Type: Spontaneous
  Country: US (occurrence: US)
  Receive Date: 20140110
  Receipt Date: 20151228
  Transmission Date: 20160305
  Serious: Yes (Death, Other)
  Sender: FDA-Public Use
  Company Number: US-SANOFI-AVENTIS-2013SA049141

PATIENT
  Age: 59 Year

DRUGS (5)
  1. PLAVIX [Suspect]
     Active Substance: CLOPIDOGREL BISULFATE
     Indication: HEART VALVE REPLACEMENT
     Route: 065
     Dates: start: 20020209, end: 200204
  2. PLAVIX [Suspect]
     Active Substance: CLOPIDOGREL BISULFATE
     Indication: HEART VALVE REPLACEMENT
     Route: 065
     Dates: start: 20050821, end: 20060416
  3. ASPIRIN. [Suspect]
     Active Substance: ASPIRIN
     Indication: PRODUCT USED FOR UNKNOWN INDICATION
     Route: 065
     Dates: start: 20020209, end: 20060416
  4. PLAVIX [Suspect]
     Active Substance: CLOPIDOGREL BISULFATE
     Indication: POSTOPERATIVE CARE
     Route: 065
     Dates: start: 20020209, end: 200204
  5. PLAVIX [Suspect]
     Active Substance: CLOPIDOGREL BISULFATE
     Indication: POSTOPERATIVE CARE
     Route: 065
     Dates: start: 20050821, end: 20060416

REACTIONS (2)
  - Cerebral haemorrhage [Fatal]
  - Cerebral haemorrhage [Unknown]

NARRATIVE: CASE EVENT DATE: 20060416
